FAERS Safety Report 16399903 (Version 2)
Quarter: 2019Q2

REPORT INFORMATION
  Report Type: Spontaneous
  Country: DE (occurrence: DE)
  Receive Date: 20190606
  Receipt Date: 20190621
  Transmission Date: 20190711
  Serious: Yes (Death)
  Sender: FDA-Public Use
  Company Number: DE-SA-2019SA151576

PATIENT
  Age: 60 Year
  Sex: Female

DRUGS (6)
  1. PROTAMIN [PROTAMINE HYDROCHLORIDE] [Concomitant]
     Dosage: UNK UNK, UNK
     Route: 065
  2. HEPARIN [Suspect]
     Active Substance: HEPARIN SODIUM
     Indication: PERIPHERAL ARTERIAL OCCLUSIVE DISEASE
     Dosage: UNK UNK, UNK
     Route: 065
  3. ACETYLSALICYLIC ACID [Suspect]
     Active Substance: ASPIRIN
     Indication: PERIPHERAL ARTERIAL OCCLUSIVE DISEASE
     Dosage: UNK UNK, UNK
     Route: 065
  4. CLOPIDOGREL BISULFATE. [Suspect]
     Active Substance: CLOPIDOGREL BISULFATE
     Indication: PERIPHERAL ARTERIAL OCCLUSIVE DISEASE
     Dosage: UNK UNK, UNK
     Route: 065
  5. PIRITRAMIDE [Concomitant]
     Active Substance: PIRITRAMIDE
     Dosage: UNK UNK, UNK
     Route: 065
  6. AMPICILLIN;SULBACTAM [Concomitant]
     Active Substance: AMPICILLIN SODIUM\SULBACTAM SODIUM
     Indication: SEPSIS
     Dosage: UNK UNK, UNK
     Route: 042
     Dates: start: 20150502

REACTIONS (4)
  - Cardiovascular disorder [Fatal]
  - Retroperitoneal haemorrhage [Fatal]
  - Resuscitation [Fatal]
  - Aspiration [Fatal]

NARRATIVE: CASE EVENT DATE: 20190502
